FAERS Safety Report 7565637-X (Version None)
Quarter: 2011Q2

REPORT INFORMATION
  Report Type: 
  Country: None (occurrence: None)
  Receive Date: 20110616
  Receipt Date: 20110610
  Transmission Date: 20111010
  Serious: Yes (Death)
  Sender: FDA-Public Use
  Company Number: 2011000001

PATIENT
  Age: 83 Year
  Sex: Female

DRUGS (13)
  1. GALANTAMINE (GALANTAMINE) [Concomitant]
  2. FISH OIL (FISH OIL) [Concomitant]
  3. SORBITOL (SORBITOL) [Concomitant]
  4. COUMADIN [Concomitant]
  5. MEGACE [Concomitant]
  6. NITROFURANTOIN [Concomitant]
  7. CALCIUM + D (CALCIUM, EROGOCALCIFEROL) [Concomitant]
  8. DEXAMETHASONE [Concomitant]
  9. DILANTIN [Concomitant]
  10. VITAMIN TAB [Concomitant]
  11. NAMENDA [Concomitant]
  12. TARCEVA [Suspect]
     Indication: LUNG CARCINOMA CELL TYPE UNSPECIFIED STAGE 0
     Dosage: 150 MG, UID/QD, ORAL; 150 MG, UID/QD, ORAL
     Route: 048
     Dates: start: 20090519
  13. TARCEVA [Suspect]
     Indication: LUNG CARCINOMA CELL TYPE UNSPECIFIED STAGE 0
     Dosage: 150 MG, UID/QD, ORAL; 150 MG, UID/QD, ORAL
     Route: 048
     Dates: start: 20100907

REACTIONS (1)
  - DYSPHAGIA [None]
